FAERS Safety Report 6787455-2 (Version None)
Quarter: 2010Q2

REPORT INFORMATION
  Report Type: 
  Country: None (occurrence: None)
  Receive Date: 20100623
  Receipt Date: 20070424
  Transmission Date: 20101027
  Serious: No
  Sender: FDA-Public Use
  Company Number: US-PFIZER INC-2006026173

PATIENT
  Sex: Female
  Weight: 93 kg

DRUGS (2)
  1. CEREBYX [Suspect]
     Indication: CONVULSION PROPHYLAXIS
     Route: 042
     Dates: start: 20060221
  2. CEREBYX [Suspect]
     Indication: CONVULSION

REACTIONS (1)
  - EXTRAVASATION [None]
